FAERS Safety Report 6159989-5 (Version None)
Quarter: 2009Q2

REPORT INFORMATION
  Report Type: 
  Country: None (occurrence: None)
  Receive Date: 20090416
  Receipt Date: 20090409
  Transmission Date: 20091009
  Serious: Yes (Hospitalization)
  Sender: FDA-Public Use
  Company Number: 09US000661

PATIENT
  Age: 72 Year
  Sex: Female

DRUGS (6)
  1. FAMOTIDINE [Suspect]
     Indication: PEPTIC ULCER
     Dosage: CHRONIC USE, ORAL
     Route: 048
  2. ESOMEPRAZOLE MAGNESIUM [Suspect]
     Indication: PEPTIC ULCER
     Dosage: CHRONIC USE ORAL
     Route: 048
  3. ALFALFA SEEDS (MEDICAGO SATIVA) [Suspect]
     Indication: PHYTOTHERAPY
     Dosage: UNKNOWN, ORAL
     Route: 048
  4. GINGER (ZINGIBER OFFICINALE RHIZOME [Suspect]
     Indication: PHYTOTHERAPY
     Dosage: ORAL
     Route: 048
  5. GINSENG (PANAX GINSENG ROOT) [Suspect]
     Indication: PHYTOTHERAPY
     Dosage: ORAL
     Route: 048
  6. HERBAL PREPARATION () [Suspect]
     Indication: PHYTOTHERAPY
     Dosage: UNKNOWN, ORAL
     Route: 048

REACTIONS (23)
  - ABDOMINAL DISCOMFORT [None]
  - AMNESIA [None]
  - ANAEMIA [None]
  - ASTHENIA [None]
  - BLOOD ALBUMIN DECREASED [None]
  - BRAIN SCAN ABNORMAL [None]
  - CONFUSIONAL STATE [None]
  - DECREASED APPETITE [None]
  - DELIRIUM [None]
  - DEMENTIA [None]
  - DRUG INTERACTION [None]
  - ECHOLALIA [None]
  - GAIT DISTURBANCE [None]
  - GASTROINTESTINAL HAEMORRHAGE [None]
  - INTENTIONAL DRUG MISUSE [None]
  - IRON DEFICIENCY [None]
  - MALNUTRITION [None]
  - MEAN CELL VOLUME INCREASED [None]
  - PALLOR [None]
  - PHYTOTHERAPY [None]
  - PROTEIN TOTAL DECREASED [None]
  - SINUS TACHYCARDIA [None]
  - VITAMIN B12 DEFICIENCY [None]
